FAERS Safety Report 7031681-4 (Version None)
Quarter: 2010Q4

REPORT INFORMATION
  Report Type: 
  Country: None (occurrence: None)
  Receive Date: 20101004
  Receipt Date: 20100927
  Transmission Date: 20110411
  Serious: Yes (Death, Hospitalization, Other)
  Sender: FDA-Public Use
  Company Number: KV201000313

PATIENT
  Age: 49 Year
  Sex: Male

DRUGS (7)
  1. PREDNISOLONE [Suspect]
     Indication: VASCULITIS
     Dosage: 60 MG, QD
  2. CYCLOPHOSPHAMIDE [Suspect]
     Indication: VASCULITIS
  3. METRONIDAZOLE [Concomitant]
  4. CEFTRIAXONE [Concomitant]
  5. VANCOMYCIN [Concomitant]
  6. CEFTAZIDIME [Concomitant]
  7. CIPROFLOXACIN [Concomitant]

REACTIONS (20)
  - ASTHENIA [None]
  - CARDIAC ARREST [None]
  - HAEMODIALYSIS [None]
  - HAEMOPTYSIS [None]
  - HEPATIC ENZYME INCREASED [None]
  - HYPOTENSION [None]
  - HYPOXIA [None]
  - KIDNEY SMALL [None]
  - LUNG INFILTRATION [None]
  - NEUTROPENIA [None]
  - NEUTROPHILIA [None]
  - NORMOCHROMIC NORMOCYTIC ANAEMIA [None]
  - PNEUMONIA [None]
  - PRODUCTIVE COUGH [None]
  - PYREXIA [None]
  - REFUSAL OF TREATMENT BY PATIENT [None]
  - STRONGYLOIDIASIS [None]
  - SUPERINFECTION [None]
  - TACHYCARDIA [None]
  - ULTRASOUND KIDNEY ABNORMAL [None]
